FAERS Safety Report 9029645 (Version 1)
Quarter: 2013Q1

REPORT INFORMATION
  Report Type: Spontaneous
  Country: US (occurrence: US)
  Receive Date: 20130125
  Receipt Date: 20130125
  Transmission Date: 20140127
  Serious: Yes (Other)
  Sender: FDA-Public Use
  Company Number: US-SANOFI-AVENTIS-2013SA003241

PATIENT
  Sex: Female

DRUGS (2)
  1. LANTUS [Suspect]
     Route: 051
  2. HUMALOG [Suspect]

REACTIONS (2)
  - Convulsion [Unknown]
  - Blood glucose decreased [Unknown]
